FAERS Safety Report 4480365-5 (Version None)
Quarter: 2004Q4

REPORT INFORMATION
  Report Type: 
  Country: None (occurrence: None)
  Receive Date: 20041018
  Receipt Date: 20041006
  Transmission Date: 20050328
  Serious: Yes (Death)
  Sender: FDA-Public Use
  Company Number: BRO-007775

PATIENT
  Age: 56 Year
  Sex: Male

DRUGS (9)
  1. IOPAMIDOL [Suspect]
     Indication: ARTERIOGRAM CORONARY
     Dosage: 15 ML INTRACORONARY
     Route: 022
     Dates: start: 20040714, end: 20040714
  2. IOPAMIDOL [Suspect]
     Indication: CARDIAC FAILURE
     Dosage: 15 ML INTRACORONARY
     Route: 022
     Dates: start: 20040714, end: 20040714
  3. TORSEMIDE [Concomitant]
  4. ALDACTONE [Concomitant]
  5. BLOPRESS (CANDESARTAN CILEXETIL) [Concomitant]
  6. SIGMART (NICORANDIL) [Concomitant]
  7. CARVEDILOL [Concomitant]
  8. HERBESSOR R (DILTIAZEM HYDROCHLORIDE) [Concomitant]
  9. WARFARIN POTASSIUM [Concomitant]

REACTIONS (11)
  - ANAPHYLACTIC SHOCK [None]
  - ATELECTASIS [None]
  - CARDIO-RESPIRATORY ARREST [None]
  - CARDIOMEGALY [None]
  - CARDIOMYOPATHY [None]
  - GENERAL PHYSICAL HEALTH DETERIORATION [None]
  - HEPATIC FAILURE [None]
  - HEPATOMEGALY [None]
  - INTRA-ABDOMINAL HAEMORRHAGE [None]
  - MULTI-ORGAN FAILURE [None]
  - RENAL FAILURE [None]
